FAERS Safety Report 18307859 (Version 3)
Quarter: 2021Q3

REPORT INFORMATION
  Report Type: Report from Study
  Country: US (occurrence: US)
  Receive Date: 20200924
  Receipt Date: 20210813
  Transmission Date: 20211014
  Serious: Yes (Other)
  Sender: FDA-Public Use
  Company Number: US-ASTRAZENECA-2020SF19013

PATIENT
  Age: 27715 Day
  Sex: Male
  Weight: 73.5 kg

DRUGS (1)
  1. LYNPARZA [Suspect]
     Active Substance: OLAPARIB
     Indication: PROSTATE CANCER METASTATIC
     Route: 048
     Dates: start: 20200109, end: 20200821

REACTIONS (2)
  - Malignant neoplasm progression [Recovered/Resolved]
  - Drug ineffective [Recovered/Resolved]

NARRATIVE: CASE EVENT DATE: 20200821
